FAERS Safety Report 10633455 (Version 1)
Quarter: 2014Q4

REPORT INFORMATION
  Report Type: Report from Study
  Country: BR (occurrence: BR)
  Receive Date: 20141205
  Receipt Date: 20141205
  Transmission Date: 20150529
  Serious: Yes (Hospitalization)
  Sender: FDA-Public Use
  Company Number: BR-BAYER-2014-176566

PATIENT
  Sex: Female

DRUGS (3)
  1. BETAFERON [Suspect]
     Active Substance: INTERFERON BETA-1B
     Indication: RELAPSING-REMITTING MULTIPLE SCLEROSIS
     Dosage: 1 DF, QOD
     Route: 058
     Dates: start: 19940622, end: 2013
  2. LOSARTAN [Concomitant]
     Active Substance: LOSARTAN
     Indication: HYPERTENSION
     Dosage: 1 DF, BID
     Route: 048
     Dates: start: 2013
  3. PURAN [Concomitant]
     Active Substance: LEVOTHYROXINE SODIUM
     Indication: HYPERTHYROIDISM
     Dosage: 1 DF, QD
     Route: 048
     Dates: start: 2009

REACTIONS (4)
  - Multiple sclerosis relapse [Recovered/Resolved]
  - Injection site reaction [Recovered/Resolved]
  - Injection site haematoma [Recovered/Resolved]
  - Injection site infection [Recovered/Resolved]
